FAERS Safety Report 12185387 (Version 1)
Quarter: 2016Q1

REPORT INFORMATION
  Report Type: Spontaneous
  Country: TW (occurrence: TW)
  Receive Date: 20160316
  Receipt Date: 20160316
  Transmission Date: 20160526
  Serious: Yes (Hospitalization)
  Sender: FDA-Public Use
  Company Number: TW-MYLANLABS-2016M1011231

PATIENT

DRUGS (5)
  1. COLCHICINE. [Interacting]
     Active Substance: COLCHICINE
     Route: 048
  2. FLUCONAZOLE. [Suspect]
     Active Substance: FLUCONAZOLE
     Indication: FUNGAL CYSTITIS
     Route: 048
  3. COLCHICINE. [Interacting]
     Active Substance: COLCHICINE
     Indication: GOUTY ARTHRITIS
     Route: 048
  4. COLCHICINE. [Interacting]
     Active Substance: COLCHICINE
     Route: 048
  5. CEFAZOLIN [Concomitant]
     Active Substance: CEFAZOLIN
     Indication: PRODUCT USED FOR UNKNOWN INDICATION
     Route: 042

REACTIONS (2)
  - Neuromyopathy [Recovered/Resolved]
  - Drug interaction [Recovered/Resolved]
